FAERS Safety Report 8139604-1 (Version None)
Quarter: 2012Q1

REPORT INFORMATION
  Report Type: 
  Country: None (occurrence: None)
  Receive Date: 20120215
  Receipt Date: 20120206
  Transmission Date: 20120608
  Serious: Yes (Hospitalization, Other)
  Sender: FDA-Public Use
  Company Number: PHHY2012CN010807

PATIENT
  Age: 45 Year
  Sex: Male

DRUGS (1)
  1. CLOZAPINE [Suspect]
     Indication: SCHIZOPHRENIA
     Dosage: 200 MG, DAILY

REACTIONS (5)
  - SCHIZOPHRENIA [None]
  - DANDY-WALKER SYNDROME [None]
  - MILD MENTAL RETARDATION [None]
  - MEMORY IMPAIRMENT [None]
  - PSYCHOTIC DISORDER [None]
